FAERS Safety Report 5198989-9 (Version None)
Quarter: 2007Q1

REPORT INFORMATION
  Report Type: 
  Country: None (occurrence: None)
  Receive Date: 20070104
  Receipt Date: 20061222
  Transmission Date: 20070707
  Serious: Yes (Hospitalization)
  Sender: FDA-Public Use
  Company Number: US-AMGEN-US204636

PATIENT
  Sex: Male

DRUGS (2)
  1. ENBREL [Suspect]
     Indication: PSORIASIS
     Route: 058
     Dates: start: 20030101
  2. DOVONEX [Concomitant]

REACTIONS (4)
  - INJECTION SITE IRRITATION [None]
  - JOINT INJURY [None]
  - STAPHYLOCOCCAL INFECTION [None]
  - VASCULAR BYPASS GRAFT [None]
